FAERS Safety Report 8368529-1 (Version None)
Quarter: 2012Q2

REPORT INFORMATION
  Report Type: 
  Country: None (occurrence: None)
  Receive Date: 20120518
  Receipt Date: 20120508
  Transmission Date: 20120825
  Serious: Yes (Other)
  Sender: FDA-Public Use
  Company Number: US-BIOGENIDEC-2012BI014123

PATIENT
  Sex: Male

DRUGS (3)
  1. AVONEX [Suspect]
     Indication: MULTIPLE SCLEROSIS
     Route: 030
     Dates: start: 20110922
  2. METHOTREXATE [Concomitant]
     Indication: EPILEPSY
  3. PREDNISONE [Concomitant]
     Indication: EPILEPSY

REACTIONS (1)
  - RENAL FAILURE [None]
